FAERS Safety Report 20436394 (Version 1)
Quarter: 2022Q1

REPORT INFORMATION
  Report Type: Spontaneous
  Country: None (occurrence: US)
  Receive Date: 20220207
  Receipt Date: 20220207
  Transmission Date: 20220423
  Serious: No
  Sender: FDA-Public Use
  Company Number: US-Changzhou Pharmaceutical Factory-2124675

PATIENT
  Age: 68 Year
  Sex: Male
  Weight: 69 kg

DRUGS (31)
  1. ROSUVASTATIN CALCIUM [Suspect]
     Active Substance: ROSUVASTATIN CALCIUM
     Indication: Product used for unknown indication
     Route: 065
  2. ENZALUTAMIDE [Interacting]
     Active Substance: ENZALUTAMIDE
     Route: 048
  3. CALCIUM CARBONATE\VITAMIN D [Concomitant]
     Active Substance: CALCIUM CARBONATE\VITAMIN D
  4. UBIDECARENONE [Concomitant]
     Active Substance: UBIDECARENONE
  5. KRILL OIL [Concomitant]
     Active Substance: DIETARY SUPPLEMENT\KRILL OIL
  6. MAGNESIUM CHLORIDE [Concomitant]
     Active Substance: MAGNESIUM CHLORIDE
  7. POTASSIUM CHLORIDE [Concomitant]
     Active Substance: POTASSIUM CHLORIDE
  8. VITAMIN B COMPLEX [Concomitant]
     Active Substance: CYANOCOBALAMIN\DEXPANTHENOL\NIACINAMIDE\PYRIDOXINE HYDROCHLORIDE\RIBOFLAVIN 5^-PHOSPHATE SODIUM\THIA
  9. NICOTINAMIDE [Concomitant]
     Active Substance: NIACINAMIDE
     Route: 065
  10. PYRIDOXINE HYDROCHLORIDE [Concomitant]
     Active Substance: PYRIDOXINE HYDROCHLORIDE
     Route: 065
  11. RIBOFLAVIN [Concomitant]
     Active Substance: RIBOFLAVIN
     Route: 065
  12. CYANOCOBALAMIN [Concomitant]
     Active Substance: CYANOCOBALAMIN
     Route: 065
  13. ASCORBIC ACID [Concomitant]
     Active Substance: ASCORBIC ACID
     Route: 065
  14. BETA CAROTENE [Concomitant]
     Active Substance: BETA CAROTENE
     Route: 065
  15. BIOTIN [Concomitant]
     Active Substance: BIOTIN
     Route: 065
  16. CALCIUM [Concomitant]
     Active Substance: CALCIUM
     Route: 065
  17. CHROMIUM [Concomitant]
     Active Substance: CHROMIC CHLORIDE\CHROMIUM
     Route: 065
  18. COPPER [Concomitant]
     Active Substance: COPPER
     Route: 065
  19. FOLIC ACID [Concomitant]
     Active Substance: FOLIC ACID
     Route: 065
  20. IODINE [Concomitant]
     Active Substance: IODINE
     Route: 065
  21. IRON [Concomitant]
     Active Substance: IRON
     Route: 065
  22. LYCOPENE [Concomitant]
     Active Substance: LYCOPENE
     Route: 065
  23. MAGNESIUM [Concomitant]
     Active Substance: MAGNESIUM
     Route: 065
  24. MANGANESE [Concomitant]
     Active Substance: MANGANESE CHLORIDE
     Route: 065
  25. Panthothenic acid [Concomitant]
     Route: 065
  26. PHOSPHORUS [Concomitant]
     Active Substance: PHOSPHORUS
     Route: 065
  27. PHYTONADIONE [Concomitant]
     Active Substance: PHYTONADIONE
     Route: 065
  28. RETINOL [Concomitant]
     Active Substance: RETINOL
     Route: 065
  29. SELENIUM SULFIDE [Concomitant]
     Active Substance: SELENIUM SULFIDE
     Route: 065
  30. LUTEIN [Concomitant]
     Active Substance: LUTEIN
     Route: 065
  31. ZINC [Concomitant]
     Active Substance: ZINC
     Route: 065

REACTIONS (15)
  - Epigastric discomfort [Not Recovered/Not Resolved]
  - Abdominal discomfort [Not Recovered/Not Resolved]
  - Vision blurred [Not Recovered/Not Resolved]
  - Lacrimation increased [Unknown]
  - Headache [Unknown]
  - Nausea [Unknown]
  - Oedema peripheral [Unknown]
  - Ocular hyperaemia [Unknown]
  - Fluid retention [Unknown]
  - Fatigue [Unknown]
  - Toxicity to various agents [Unknown]
  - Intraocular pressure test abnormal [Unknown]
  - Hypertension [Not Recovered/Not Resolved]
  - Drug interaction [Unknown]
  - Intraocular pressure increased [Not Recovered/Not Resolved]

NARRATIVE: CASE EVENT DATE: 20210201
